FAERS Safety Report 13453709 (Version 1)
Quarter: 2017Q2

REPORT INFORMATION
  Report Type: Spontaneous
  Country: US (occurrence: US)
  Receive Date: 20170418
  Receipt Date: 20170418
  Transmission Date: 20170830
  Serious: No
  Sender: FDA-Public Use
  Company Number: US-ALLERGAN-1654011US

PATIENT
  Sex: Male

DRUGS (1)
  1. LUMIGAN [Suspect]
     Active Substance: BIMATOPROST
     Indication: PRODUCT USED FOR UNKNOWN INDICATION
     Dosage: 2 GTT, BID
     Route: 047
     Dates: start: 2012

REACTIONS (2)
  - Eye irritation [Recovered/Resolved]
  - Eye pain [Recovered/Resolved]

NARRATIVE: CASE EVENT DATE: 2012
